FAERS Safety Report 7974510-4 (Version None)
Quarter: 2011Q4

REPORT INFORMATION
  Report Type: 
  Country: None (occurrence: None)
  Receive Date: 20111213
  Receipt Date: 20111207
  Transmission Date: 20120403
  Serious: Yes (Other)
  Sender: FDA-Public Use
  Company Number: BR-ABBOTT-11P-020-0707447-00

PATIENT
  Sex: Female
  Weight: 100 kg

DRUGS (8)
  1. ATENOLOL [Concomitant]
     Indication: ARRHYTHMIA
  2. ALLOPURINOL [Concomitant]
     Indication: BLOOD URIC ACID
     Route: 048
     Dates: start: 20050101
  3. PARRIK [Concomitant]
     Indication: PROPHYLAXIS
     Route: 048
  4. UNKNOWN MAGISTRAL FORMULA [Concomitant]
     Indication: RHEUMATOID ARTHRITIS
     Route: 048
  5. ALPRAZOLAM [Concomitant]
     Indication: ANXIOLYTIC THERAPY
     Route: 048
  6. HUMIRA [Suspect]
     Indication: RHEUMATOID ARTHRITIS
     Route: 058
     Dates: end: 20101201
  7. PARRIK [Concomitant]
     Indication: GASTRIC DISORDER
  8. LISINOPRIL [Concomitant]
     Indication: HYPERTENSION
     Route: 048
     Dates: start: 19940101

REACTIONS (8)
  - JOINT SWELLING [None]
  - INFLAMMATION [None]
  - IMPAIRED HEALING [None]
  - PURULENT DISCHARGE [None]
  - DRUG INEFFECTIVE [None]
  - PAIN [None]
  - ERYTHEMA [None]
  - INFECTION [None]
